FAERS Safety Report 5655066-8 (Version None)
Quarter: 2008Q1

REPORT INFORMATION
  Report Type: 
  Country: None (occurrence: None)
  Receive Date: 20080219
  Receipt Date: 20071105
  Transmission Date: 20080703
  Serious: No
  Sender: FDA-Public Use
  Company Number: WAES 0711USA03397

PATIENT
  Age: 81 Year
  Sex: Male

DRUGS (5)
  1. JANUVIA [Suspect]
     Indication: TYPE 2 DIABETES MELLITUS
     Dosage: 50 MG/DAILY/PO
     Route: 048
     Dates: start: 20070601
  2. ADVAIR DISKUS 100/50 [Concomitant]
  3. DIOVAN [Concomitant]
  4. BRIMONIDINE TARTRATE [Concomitant]
  5. SIMVASTATIN [Concomitant]

REACTIONS (1)
  - ERYTHEMA [None]
